FAERS Safety Report 5504084-9 (Version None)
Quarter: 2007Q4

REPORT INFORMATION
  Report Type: 
  Country: None (occurrence: None)
  Receive Date: 20071101
  Receipt Date: 20071030
  Transmission Date: 20080405
  Serious: Yes (Hospitalization, Other)
  Sender: FDA-Public Use
  Company Number: AU-AVENTIS-200719957GDDC

PATIENT
  Age: 78 Year
  Sex: Male

DRUGS (8)
  1. LANTUS [Suspect]
     Dates: start: 20070518
  2. AUTOPEN INSULIN INJECTION PEN [Suspect]
  3. NOVORAPID [Concomitant]
  4. ISCOVER [Concomitant]
  5. TRITACE [Concomitant]
  6. UREX                               /00024401/ [Concomitant]
  7. PANTOPRAZOLE SODIUM [Concomitant]
  8. PRAZOSIN HCL [Concomitant]

REACTIONS (1)
  - CORONARY ARTERY BYPASS [None]
